FAERS Safety Report 5193622-4 (Version None)
Quarter: 2006Q4

REPORT INFORMATION
  Report Type: 
  Country: None (occurrence: None)
  Receive Date: 20061221
  Receipt Date: 20061213
  Transmission Date: 20070319
  Serious: Yes (Other)
  Sender: FDA-Public Use
  Company Number: 083-20785-06120813

PATIENT
  Age: 44 Year
  Sex: Female

DRUGS (6)
  1. THALOMID [Suspect]
     Indication: MULTIPLE MYELOMA
     Dosage: ORAL
     Route: 048
  2. VINCRISTINE [Concomitant]
  3. ADRIAMYCIN PFS [Concomitant]
  4. DEXAMETHASONE TAB [Concomitant]
  5. PAMIDRONIC ACID (PAMIDRONIC ACID) [Concomitant]
  6. ZOLEDRONIC ACID (ZOLEDRONIC ACID) [Concomitant]

REACTIONS (2)
  - OSTEONECROSIS [None]
  - PAIN [None]
